FAERS Safety Report 4818939-1 (Version None)
Quarter: 2005Q4

REPORT INFORMATION
  Report Type: 
  Country: None (occurrence: None)
  Receive Date: 20051101
  Receipt Date: 20051026
  Transmission Date: 20060501
  Serious: Yes (Other)
  Sender: FDA-Public Use
  Company Number: 2005144558

PATIENT
  Sex: 0

DRUGS (6)
  1. NIFEDIPINE [Suspect]
     Indication: HYPERTENSION
     Dosage: 10 MG (DAILY); 80 MG (DAILY), ORAL
     Route: 048
  2. RIFAMPICIN [Suspect]
     Indication: PLEURISY
  3. AMLODIPINE [Concomitant]
  4. ATENOLOL [Concomitant]
  5. URAPIDIL (URAPIDIL) [Concomitant]
  6. CANDESARTAN (CANDESARTAN) [Concomitant]

REACTIONS (5)
  - BLOOD CREATININE INCREASED [None]
  - BLOOD PRESSURE INCREASED [None]
  - DIALYSIS [None]
  - FATIGUE [None]
  - OEDEMA [None]
